FAERS Safety Report 7022296-2 (Version None)
Quarter: 2010Q3

REPORT INFORMATION
  Report Type: 
  Country: None (occurrence: None)
  Receive Date: 20100930
  Receipt Date: 20100921
  Transmission Date: 20110219
  Serious: Yes (Hospitalization, Other)
  Sender: FDA-Public Use
  Company Number: US-ABBOTT-10P-163-0646917-00

PATIENT
  Age: 38 Year
  Sex: Male
  Weight: 77.18 kg

DRUGS (4)
  1. DEPAKOTE [Suspect]
     Indication: BIPOLAR DISORDER
  2. GEODON [Suspect]
     Indication: BIPOLAR DISORDER
     Route: 048
  3. VARENICLINE [Concomitant]
     Indication: PRODUCT USED FOR UNKNOWN INDICATION
  4. ZOCOR [Concomitant]
     Indication: PRODUCT USED FOR UNKNOWN INDICATION

REACTIONS (4)
  - DYSKINESIA [None]
  - FEELING ABNORMAL [None]
  - TREMOR [None]
  - WEIGHT ABNORMAL [None]
